FAERS Safety Report 6155728-2 (Version None)
Quarter: 2009Q2

REPORT INFORMATION
  Report Type: 
  Country: None (occurrence: None)
  Receive Date: 20090415
  Receipt Date: 20090407
  Transmission Date: 20091009
  Serious: Yes (Hospitalization)
  Sender: FDA-Public Use
  Company Number: B0568922A

PATIENT
  Sex: Male
  Weight: 41 kg

DRUGS (1)
  1. ARIXTRA [Suspect]
     Indication: THROMBOSIS PROPHYLAXIS
     Dosage: 2.5MG PER DAY
     Route: 058
     Dates: start: 20081224, end: 20090104

REACTIONS (3)
  - HAEMATOMA [None]
  - HAEMORRHAGE [None]
  - SUPERINFECTION [None]
